FAERS Safety Report 18839082 (Version 1)
Quarter: 2021Q1

REPORT INFORMATION
  Report Type: Spontaneous
  Country: US (occurrence: US)
  Receive Date: 20210203
  Receipt Date: 20210203
  Transmission Date: 20210419
  Serious: No
  Sender: FDA-Public Use
  Company Number: US-ALLERGAN-2049515US

PATIENT
  Sex: Female

DRUGS (2)
  1. BOTOX COSMETIC [Suspect]
     Active Substance: ONABOTULINUMTOXINA
     Indication: SKIN WRINKLING
     Dosage: UNK, SINGLE
     Dates: start: 20201128, end: 20201128
  2. JUVEDERM ULTRA XC [Suspect]
     Active Substance: HYALURONIC ACID\LIDOCAINE HYDROCHLORIDE
     Indication: SKIN WRINKLING
     Dosage: UNK
     Dates: start: 20201128, end: 20201128

REACTIONS (13)
  - Throat tightness [Not Recovered/Not Resolved]
  - Fear [Unknown]
  - Speech disorder [Unknown]
  - Drug hypersensitivity [Not Recovered/Not Resolved]
  - Confusional state [Unknown]
  - Eye movement disorder [Unknown]
  - Tremor [Unknown]
  - Tongue pruritus [Not Recovered/Not Resolved]
  - Visual impairment [Not Recovered/Not Resolved]
  - Crying [Unknown]
  - Migraine [Not Recovered/Not Resolved]
  - Feeling cold [Unknown]
  - Off label use [Unknown]
